FAERS Safety Report 17543242 (Version 1)
Quarter: 2020Q1

REPORT INFORMATION
  Report Type: Report from Study
  Country: US (occurrence: US)
  Receive Date: 20200316
  Receipt Date: 20200316
  Transmission Date: 20200409
  Serious: No
  Sender: FDA-Public Use
  Company Number: NVSC2020US069648

PATIENT
  Sex: Female

DRUGS (1)
  1. GILENYA [Suspect]
     Active Substance: FINGOLIMOD HYDROCHLORIDE
     Indication: PRODUCT USED FOR UNKNOWN INDICATION
     Dosage: 0.5 MG, QD
     Route: 048

REACTIONS (8)
  - Memory impairment [Unknown]
  - Constipation [Unknown]
  - Liver disorder [Unknown]
  - Skin disorder [Unknown]
  - Fall [Unknown]
  - Speech disorder [Unknown]
  - Visual impairment [Unknown]
  - Dysuria [Unknown]
